FAERS Safety Report 4850427-9 (Version None)
Quarter: 2005Q4

REPORT INFORMATION
  Report Type: 
  Country: None (occurrence: None)
  Receive Date: 20051123
  Receipt Date: 20051020
  Transmission Date: 20060501
  Serious: No
  Sender: FDA-Public Use
  Company Number: TPA2005A01294

PATIENT
  Age: 73 Year
  Sex: Female
  Weight: 102.0593 kg

DRUGS (9)
  1. ROZEREM [Suspect]
     Indication: INSOMNIA
     Dosage: 8 MG, QHS, PER ORAL
     Route: 048
     Dates: start: 20051019
  2. OMEPRAZOLE (OMEPRAZOLE) (20 MILLIGRAM) [Concomitant]
  3. LIPITOR [Concomitant]
  4. XANAX (ALPRAZOLAM) (0.5 MILLIGRAM) [Concomitant]
  5. ANAFRANIL (CLOMIPRAMINE HYDROCHLORIDE) (20 MILLIGRAM) [Concomitant]
  6. TAZTIA XT (DILTIAZEM) (300 MILLIGRAM) [Concomitant]
  7. GABAPENTIN (GABAPENTIN) (600 MILLIGRAM, TABLETS) [Concomitant]
  8. FOSAMAX (ALENDRONATE SODIUM) (70 MILLIGRAM) [Concomitant]
  9. TYLENOL PM (TYLENOL PM) [Concomitant]

REACTIONS (1)
  - MYALGIA [None]
